FAERS Safety Report 10226334 (Version 1)
Quarter: 2014Q2

REPORT INFORMATION
  Report Type: Spontaneous
  Country: US (occurrence: US)
  Receive Date: 20140609
  Receipt Date: 20140609
  Transmission Date: 20141212
  Serious: No
  Sender: FDA-Public Use
  Company Number: US-009507513-1406USA003019

PATIENT
  Age: 31 Year
  Sex: Female
  Weight: 58.96 kg

DRUGS (5)
  1. CLARITIN [Suspect]
     Indication: SEASONAL ALLERGY
     Dosage: 10 MG, QD
     Route: 048
     Dates: start: 20140402, end: 20140407
  2. CLARITIN [Suspect]
     Indication: SINUS HEADACHE
  3. CLARITIN [Suspect]
     Indication: THROAT IRRITATION
  4. CLARITIN [Suspect]
     Indication: NASAL DISCOMFORT
  5. CALCIUM (UNSPECIFIED) [Concomitant]
     Indication: PRODUCT USED FOR UNKNOWN INDICATION
     Dosage: UNK, UNKNOWN

REACTIONS (1)
  - Drug ineffective [Unknown]
